FAERS Safety Report 17133985 (Version 1)
Quarter: 2019Q4

REPORT INFORMATION
  Report Type: Spontaneous
  Country: US (occurrence: US)
  Receive Date: 20191209
  Receipt Date: 20191209
  Transmission Date: 20200122
  Serious: Yes (Hospitalization)
  Sender: FDA-Public Use
  Company Number: None

PATIENT
  Age: 74 Year
  Sex: Male

DRUGS (13)
  1. NEXIUM CAPSULE 20MG [Concomitant]
     Dates: start: 20080822
  2. HUMIRA 40MG/08.ML [Concomitant]
     Dates: start: 20080822
  3. METHOTREXATE TABLETS 2.5MG [Concomitant]
     Active Substance: METHOTREXATE
     Dates: start: 20080822
  4. LANTUS SOLOS INJECTION 100ML [Concomitant]
     Dates: start: 20191204
  5. XELJANZ XR [Suspect]
     Active Substance: TOFACITINIB CITRATE
     Indication: RHEUMATOID ARTHRITIS
     Route: 048
     Dates: start: 20180928
  6. ASPIRIN LOW TABLET 81 MG EC [Concomitant]
     Dates: start: 20191204
  7. AGGRENOX CAPSULES 25-200MG [Concomitant]
     Dates: start: 20080822
  8. NORVASC TABLET 10MG [Concomitant]
     Dates: start: 20080822
  9. METFORMIN [Concomitant]
     Active Substance: METFORMIN HYDROCHLORIDE
     Dates: start: 20191204
  10. LEFLUNOMIDE TABLET 10MG [Concomitant]
     Dates: start: 20191205
  11. METOPROL SUC TABLET 50MG ER [Concomitant]
     Dates: start: 20191204
  12. AMLODIPINE [Concomitant]
     Active Substance: AMLODIPINE BESYLATE
     Dates: start: 20191204
  13. TAMSULOSIN CAPSULE 0.4MG [Concomitant]
     Dates: start: 20191204

REACTIONS (1)
  - Hospitalisation [None]

NARRATIVE: CASE EVENT DATE: 20191206
